FAERS Safety Report 5193803-X (Version None)
Quarter: 2006Q4

REPORT INFORMATION
  Report Type: 
  Country: None (occurrence: None)
  Receive Date: 20061228
  Receipt Date: 20061218
  Transmission Date: 20070319
  Serious: Yes (Death, Other)
  Sender: FDA-Public Use
  Company Number: US-ELI_LILLY_AND_COMPANY-US200612003607

PATIENT
  Age: 55 Year
  Sex: Female

DRUGS (17)
  1. DULOXETINE HYDROCHLORIDE [Suspect]
     Dosage: 60 MG, DAILY (1/D)
  2. DULOXETINE HYDROCHLORIDE [Suspect]
     Dosage: 3 MG, DAILY (1/D)
  3. FENTANYL [Concomitant]
     Indication: PAIN
     Dosage: 75 UG, OTHER
     Route: 062
  4. FENTANYL [Concomitant]
     Dosage: 400 UG, EVERY 3 HRS
     Route: 048
  5. GABAPENTIN [Concomitant]
  6. ALENDRONATE SODIUM [Concomitant]
  7. BACLOFEN [Concomitant]
  8. FLUCONAZOLE [Concomitant]
  9. FUROSEMIDE [Concomitant]
  10. LANSOPRAZOLE [Concomitant]
  11. LIDOCAINE [Concomitant]
  12. VITAMIN CAP [Concomitant]
  13. NYSTATIN [Concomitant]
     Route: 048
  14. QUETIAPINE FUMARATE [Concomitant]
     Indication: INSOMNIA
     Dosage: 50 MG, EACH EVENING
  15. PIPERACILLIN [Concomitant]
     Indication: INFECTION
  16. VANCOMYCIN HCL [Concomitant]
     Indication: INFECTION
  17. LINEZOLID [Concomitant]
     Indication: INFECTION

REACTIONS (4)
  - DRUG INTERACTION [None]
  - RENAL FAILURE [None]
  - SEPSIS [None]
  - SEROTONIN SYNDROME [None]
